FAERS Safety Report 17825884 (Version 2)
Quarter: 2021Q2

REPORT INFORMATION
  Report Type: Spontaneous
  Country: US (occurrence: US)
  Receive Date: 20200526
  Receipt Date: 20210621
  Transmission Date: 20210717
  Serious: Yes (Other)
  Sender: FDA-Public Use
  Company Number: US-TEVA-2020-US-1239720

PATIENT
  Age: 55 Year
  Sex: Male
  Weight: 102.15 kg

DRUGS (10)
  1. VALSARTAN ACTAVIS [Suspect]
     Active Substance: VALSARTAN
     Indication: HYPERTENSION
     Route: 048
     Dates: start: 20160223, end: 20160324
  2. VALSARTAN SOLCO HEALTHCARE [Suspect]
     Active Substance: VALSARTAN
     Indication: HYPERTENSION
     Route: 048
     Dates: start: 20160429, end: 20160815
  3. HYDROCHLOROTHIAZIDE. [Concomitant]
     Active Substance: HYDROCHLOROTHIAZIDE
     Indication: HYPERTENSION
     Route: 065
  4. AMLODIPINE BESYLATE. [Concomitant]
     Active Substance: AMLODIPINE BESYLATE
     Indication: HYPERTENSION
     Route: 065
  5. VITAMINS [Concomitant]
     Active Substance: VITAMINS
     Route: 065
  6. VALSARTAN SOLCO HEALTHCARE [Suspect]
     Active Substance: VALSARTAN
     Route: 048
     Dates: start: 20170406, end: 20180728
  7. ANDROGEL [Concomitant]
     Active Substance: TESTOSTERONE
     Indication: BLOOD TESTOSTERONE DECREASED
     Route: 065
  8. VALSARTAN ACTAVIS [Suspect]
     Active Substance: VALSARTAN
     Route: 048
     Dates: start: 20160816, end: 20160915
  9. VALSARTAN SOLCO HEALTHCARE [Suspect]
     Active Substance: VALSARTAN
     Route: 048
     Dates: start: 20160917, end: 20170117
  10. VALSARTAN OHM LABORATORIES [Suspect]
     Active Substance: VALSARTAN
     Indication: HYPERTENSION
     Route: 048

REACTIONS (1)
  - Prostate cancer [Unknown]
